FAERS Safety Report 25834819 (Version 3)
Quarter: 2025Q4

REPORT INFORMATION
  Report Type: Spontaneous
  Country: EU (occurrence: EU)
  Receive Date: 20250923
  Receipt Date: 20251009
  Transmission Date: 20260117
  Serious: Yes (Hospitalization, Other)
  Sender: SANDOZ
  Company Number: EU-EMB-M202405779-1

PATIENT
  Sex: Female
  Weight: 2.585 kg

DRUGS (18)
  1. TETANUS TOXOID, REDUCED DIPHTHERIA TOXOID AND ACELLULAR PERTUSSIS VACC [Suspect]
     Active Substance: TETANUS TOXOID, REDUCED DIPHTHERIA TOXOID AND ACELLULAR PERTUSSIS VACCINE ADSORBED, TDAP
     Indication: Immunisation
     Dosage: UNK, QD
     Route: 064
     Dates: start: 202405, end: 202405
  2. TETANUS TOXOID, REDUCED DIPHTHERIA TOXOID AND ACELLULAR PERTUSSIS VACC [Suspect]
     Active Substance: TETANUS TOXOID, REDUCED DIPHTHERIA TOXOID AND ACELLULAR PERTUSSIS VACCINE ADSORBED, TDAP
     Indication: Immunisation
  3. DESLORATADINE [Suspect]
     Active Substance: DESLORATADINE
     Dosage: 210 MILLIGRAM, Q4W
     Route: 064
     Dates: start: 202310, end: 202407
  4. DESLORATADINE [Suspect]
     Active Substance: DESLORATADINE
     Indication: Hypersensitivity
     Dosage: 5 MG, QD
     Route: 064
     Dates: start: 202310, end: 202407
  5. FOSTER [Suspect]
     Active Substance: BECLOMETHASONE\FORMOTEROL
     Indication: Asthma
     Dosage: 400/12 ?G INSTEAD OF TRIMBOW
     Route: 064
     Dates: start: 202406, end: 202407
  6. OMEPRAZOLE [Suspect]
     Active Substance: OMEPRAZOLE
     Indication: Gastrooesophageal reflux disease
     Dosage: 20 MG EVERY 2 TO 3 DAYS
     Route: 064
  7. HYDROCORTISONE [Suspect]
     Active Substance: HYDROCORTISONE
     Indication: Adrenal insufficiency
     Dosage: 20-30 MG/D, QD
     Route: 064
     Dates: start: 202310, end: 202407
  8. TEZSPIRE [Suspect]
     Active Substance: TEZEPELUMAB-EKKO
     Indication: Asthmatic crisis
     Dosage: 210 MG, Q4W
     Route: 064
     Dates: start: 202310, end: 202407
  9. TEZSPIRE [Suspect]
     Active Substance: TEZEPELUMAB-EKKO
     Indication: Asthma
  10. TEZSPIRE [Suspect]
     Active Substance: TEZEPELUMAB-EKKO
     Indication: Asthmatic crisis
  11. BECLOMETHASONE DIPROPIONATE\FORMOTEROL FUMARATE\GLYCOPYRROLATE [Suspect]
     Active Substance: BECLOMETHASONE DIPROPIONATE\FORMOTEROL FUMARATE\GLYCOPYRROLATE
     Indication: Asthma
     Dosage: 344/10/18 ?G 2X DAILY
     Route: 064
     Dates: start: 202310, end: 202406
  12. Calcet [Concomitant]
     Indication: Osteopenia
     Dosage: 475 MG
     Route: 064
     Dates: start: 202310, end: 202407
  13. Comirnaty [Concomitant]
     Indication: COVID-19 immunisation
     Dosage: QD
     Route: 064
     Dates: start: 202311, end: 202311
  14. ENOXAPARIN SODIUM [Concomitant]
     Active Substance: ENOXAPARIN SODIUM
     Indication: Coagulopathy
     Dosage: 4000 UIU, QD
     Route: 064
  15. OMEPRAZOLE [Concomitant]
     Active Substance: OMEPRAZOLE
     Indication: Gastrooesophageal reflux disease
     Dosage: 20 MG EVERY 2 TO 3 DAYS
     Route: 064
  16. ACETAMINOPHEN [Concomitant]
     Active Substance: ACETAMINOPHEN
     Indication: COVID-19
     Dosage: FOR 5 DAYS BETWEEN GW 12 TO 16
     Route: 064
  17. ACETAMINOPHEN [Concomitant]
     Active Substance: ACETAMINOPHEN
     Indication: Pyrexia
  18. CHOLECALCIFEROL [Concomitant]
     Active Substance: CHOLECALCIFEROL
     Indication: Osteopenia
     Dosage: 1000.000[IU] INTERNATION UNIT(S) QD
     Route: 064
     Dates: start: 202310, end: 202407

REACTIONS (3)
  - Neonatal infection [Recovered/Resolved]
  - Small for dates baby [Recovered/Resolved]
  - Foetal exposure during pregnancy [Recovered/Resolved]

NARRATIVE: CASE EVENT DATE: 20240701
